FAERS Safety Report 5389184-9 (Version None)
Quarter: 2007Q3

REPORT INFORMATION
  Report Type: 
  Country: None (occurrence: None)
  Receive Date: 20070717
  Receipt Date: 20070709
  Transmission Date: 20080115
  Serious: Yes (Hospitalization)
  Sender: FDA-Public Use
  Company Number: GB-AVENTIS-200716236GDDC

PATIENT
  Age: 88 Year
  Sex: Male

DRUGS (6)
  1. RIFAMPICIN [Suspect]
  2. ISONIAZID [Suspect]
     Indication: TUBERCULOSIS
     Route: 048
     Dates: start: 20060701
  3. LEVOTHYROXINE SODIUM [Concomitant]
     Indication: HYPOTHYROIDISM
     Route: 048
  4. PYRIDOXINE HCL [Concomitant]
     Indication: TUBERCULOSIS
     Route: 048
     Dates: start: 20060711
  5. SALBUTAMOL [Concomitant]
     Indication: ASTHMA
     Route: 055
  6. TIOTROPIUM BROMIDE [Concomitant]
     Indication: ASTHMA
     Route: 055

REACTIONS (2)
  - HYPOAESTHESIA [None]
  - NEUROPATHY PERIPHERAL [None]
